FAERS Safety Report 24992385 (Version 1)
Quarter: 2025Q1

REPORT INFORMATION
  Report Type: Spontaneous
  Country: FR (occurrence: FR)
  Receive Date: 20250220
  Receipt Date: 20250220
  Transmission Date: 20250408
  Serious: Yes (Other)
  Sender: UCB
  Company Number: None

PATIENT
  Age: 14 Year
  Sex: Female
  Weight: 44.9 kg

DRUGS (1)
  1. FINTEPLA [Suspect]
     Active Substance: FENFLURAMINE
     Indication: Lennox-Gastaut syndrome
     Route: 048
     Dates: start: 20230921, end: 20241211

REACTIONS (1)
  - Mitral valve dysplasia [Recovering/Resolving]

NARRATIVE: CASE EVENT DATE: 20241101
